FAERS Safety Report 7804048-6 (Version None)
Quarter: 2011Q4

REPORT INFORMATION
  Report Type: 
  Country: None (occurrence: None)
  Receive Date: 20111010
  Receipt Date: 20110927
  Transmission Date: 20120403
  Serious: Yes (Hospitalization, Other)
  Sender: FDA-Public Use
  Company Number: US-JNJFOC-20110200978

PATIENT
  Sex: Female
  Weight: 90.72 kg

DRUGS (3)
  1. RISPERDAL [Suspect]
     Indication: MAJOR DEPRESSION
     Route: 048
     Dates: start: 19990101, end: 20000101
  2. REMERON [Concomitant]
     Indication: ILL-DEFINED DISORDER
     Route: 048
  3. ARTANE [Suspect]
     Indication: ILL-DEFINED DISORDER
     Route: 065

REACTIONS (6)
  - PARKINSON'S DISEASE [None]
  - HYPERTENSIVE CRISIS [None]
  - HYPERTENSION [None]
  - GAIT DISTURBANCE [None]
  - MASKED FACIES [None]
  - OFF LABEL USE [None]
